FAERS Safety Report 4596919-1 (Version None)
Quarter: 2005Q1

REPORT INFORMATION
  Report Type: 
  Country: None (occurrence: None)
  Receive Date: 20050225
  Receipt Date: 20050210
  Transmission Date: 20050727
  Serious: Yes (Other)
  Sender: FDA-Public Use
  Company Number: 2005-BP-02179RO

PATIENT
  Age: 30 Year
  Sex: Female

DRUGS (2)
  1. MIDAZOLAM HCL [Suspect]
     Indication: SEDATION
     Dosage: 2.5 MG, IV/ONCE
     Route: 042
  2. FENTANYL [Suspect]
     Indication: SEDATION
     Dosage: 0.1 MG , IV/ONCE
     Route: 042

REACTIONS (1)
  - MIGRAINE WITH AURA [None]
